FAERS Safety Report 23675226 (Version 1)
Quarter: 2024Q1

REPORT INFORMATION
  Report Type: Report from Study
  Country: US (occurrence: US)
  Receive Date: 20240326
  Receipt Date: 20240326
  Transmission Date: 20240410
  Serious: Yes (Other)
  Sender: FDA-Public Use
  Company Number: US-ABBVIE-5690016

PATIENT
  Sex: Female

DRUGS (1)
  1. HUMIRA [Suspect]
     Active Substance: ADALIMUMAB
     Indication: Rheumatoid arthritis
     Route: 058
     Dates: start: 20150530

REACTIONS (6)
  - Pulmonary thrombosis [Recovered/Resolved]
  - Blood urine present [Not Recovered/Not Resolved]
  - Arthralgia [Not Recovered/Not Resolved]
  - Haematochezia [Not Recovered/Not Resolved]
  - Pain in extremity [Unknown]
  - Peripheral swelling [Unknown]
